FAERS Safety Report 16404570 (Version 1)
Quarter: 2019Q2

REPORT INFORMATION
  Report Type: Spontaneous
  Country: US (occurrence: US)
  Receive Date: 20190502
  Receipt Date: 20190502
  Transmission Date: 20190711
  Serious: Yes (Hospitalization)
  Sender: FDA-Public Use
  Company Number: None

PATIENT
  Age: 28 Year
  Sex: Male

DRUGS (1)
  1. AMPHETAMINE/DEXTROAMPHETAMINE [Suspect]
     Active Substance: AMPHETAMINE\DEXTROAMPHETAMINE
     Indication: ATTENTION DEFICIT/HYPERACTIVITY DISORDER
     Dosage: ?          OTHER DOSE:1 TAB;?
     Route: 048
     Dates: start: 20190409, end: 20190411

REACTIONS (4)
  - Bipolar I disorder [None]
  - Psychotic disorder [None]
  - Agitation [None]
  - Hallucination [None]

NARRATIVE: CASE EVENT DATE: 20190411
